FAERS Safety Report 10739450 (Version 1)
Quarter: 2015Q1

REPORT INFORMATION
  Report Type: Spontaneous
  Country: US (occurrence: US)
  Receive Date: 20150126
  Receipt Date: 20150126
  Transmission Date: 20150721
  Serious: Yes (Other)
  Sender: FDA-Public Use
  Company Number: US-GLAXOSMITHKLINE-US2015GSK009463

PATIENT
  Age: 63 Year
  Sex: Female

DRUGS (2)
  1. LAMICTAL [Suspect]
     Active Substance: LAMOTRIGINE
     Dosage: 25 MG, U
  2. LAMICTAL [Suspect]
     Active Substance: LAMOTRIGINE
     Indication: CEREBROVASCULAR ACCIDENT
     Dosage: 100 MG, U
     Dates: start: 20120703

REACTIONS (1)
  - Cerebrovascular accident [Unknown]

NARRATIVE: CASE EVENT DATE: 201309
